FAERS Safety Report 14208320 (Version 1)
Quarter: 2017Q4

REPORT INFORMATION
  Report Type: Spontaneous
  Country: US (occurrence: US)
  Receive Date: 20171121
  Receipt Date: 20171121
  Transmission Date: 20180321
  Serious: No
  Sender: FDA-Public Use
  Company Number: US-009507513-1710USA014499

PATIENT
  Sex: Female

DRUGS (1)
  1. NEXPLANON [Suspect]
     Active Substance: ETONOGESTREL
     Dosage: 1 ROD, UNK
     Route: 059
     Dates: start: 20170308, end: 20171025

REACTIONS (3)
  - Device breakage [Recovered/Resolved]
  - Burning sensation [Unknown]
  - Pain in extremity [Unknown]

NARRATIVE: CASE EVENT DATE: 2017
